FAERS Safety Report 5675510-X (Version None)
Quarter: 2008Q1

REPORT INFORMATION
  Report Type: 
  Country: None (occurrence: None)
  Receive Date: 20080225
  Receipt Date: 20071226
  Transmission Date: 20080703
  Serious: Yes (Disabling, Other)
  Sender: FDA-Public Use
  Company Number: HEPB_00001

PATIENT
  Age: 60 Year
  Sex: Male
  Weight: 81 kg

DRUGS (3)
  1. HEPAGAM B [Suspect]
     Indication: LIVER TRANSPLANT
     Dosage: 20000 IU ONCE IV
     Route: 042
     Dates: start: 20071223, end: 20071223
  2. TYLENOL (CAPLET) [Concomitant]
  3. BENADRYL [Concomitant]

REACTIONS (1)
  - DYSPEPSIA [None]
